FAERS Safety Report 10554073 (Version 3)
Quarter: 2014Q4

REPORT INFORMATION
  Report Type: Spontaneous
  Country: US (occurrence: None)
  Receive Date: 20141028
  Receipt Date: 20141120
  Transmission Date: 20150529
  Serious: Yes (Death, Hospitalization, Other)
  Sender: FDA-Public Use
  Company Number: BU2014-005

PATIENT
  Age: 19 Year
  Sex: Male

DRUGS (4)
  1. BUPHENYL [Suspect]
     Active Substance: SODIUM PHENYLBUTYRATE
     Indication: AMINO ACID METABOLISM DISORDER
     Route: 048
     Dates: start: 2001, end: 201410
  2. L-ARGININE [Concomitant]
     Active Substance: ARGININE
  3. CITRULLINE [Concomitant]
     Active Substance: CITRULLINE
  4. RAVICTI [Concomitant]
     Active Substance: GLYCEROL PHENYLBUTYRATE

REACTIONS (7)
  - Hyperammonaemic crisis [None]
  - Aphasia [None]
  - Unevaluable event [None]
  - Dyspnoea [None]
  - Haemodialysis [None]
  - Anaplastic large-cell lymphoma [None]
  - Drug effect incomplete [None]

NARRATIVE: CASE EVENT DATE: 201408
